FAERS Safety Report 19797748 (Version 1)
Quarter: 2021Q3

REPORT INFORMATION
  Report Type: Spontaneous
  Country: US (occurrence: US)
  Receive Date: 20210902
  Receipt Date: 20210902
  Transmission Date: 20211014
  Serious: Yes (Hospitalization)
  Sender: FDA-Public Use
  Company Number: None

PATIENT
  Sex: Female

DRUGS (1)
  1. COPAXONE [Suspect]
     Active Substance: GLATIRAMER ACETATE
     Indication: MULTIPLE SCLEROSIS
     Dosage: 1 SYRINGE 3 TIMES PER WEEK
     Route: 058
     Dates: start: 202104

REACTIONS (3)
  - Condition aggravated [None]
  - Band sensation [None]
  - Peroneal nerve palsy [None]
